FAERS Safety Report 8775097 (Version 2)
Quarter: 2012Q4

REPORT INFORMATION
  Report Type: Report from Study
  Country: IT (occurrence: IT)
  Receive Date: 20120910
  Receipt Date: 20120923
  Transmission Date: 20130627
  Serious: Yes (Hospitalization)
  Sender: FDA-Public Use
  Company Number: IT-BIOGENIDEC-2012BI035515

PATIENT
  Age: 47 Year
  Sex: Female

DRUGS (5)
  1. TYSABRI [Suspect]
     Indication: RELAPSING-REMITTING MULTIPLE SCLEROSIS
     Route: 042
     Dates: start: 20091204
  2. PREGABALIN [Concomitant]
     Route: 048
  3. CARBAMAZEPINE [Concomitant]
     Route: 048
     Dates: start: 20120217
  4. OXYBUTYNIN [Concomitant]
     Indication: NEUROGENIC BLADDER
     Route: 048
     Dates: start: 20100115, end: 20120502
  5. TAMSULOSIN [Concomitant]
     Indication: NEUROGENIC BLADDER
     Route: 048
     Dates: start: 20120115

REACTIONS (3)
  - Bipolar disorder [Unknown]
  - Major depression [Recovered/Resolved]
  - Suicidal ideation [Recovered/Resolved]
